FAERS Safety Report 6102582-0 (Version None)
Quarter: 2009Q1

REPORT INFORMATION
  Report Type: 
  Country: None (occurrence: None)
  Receive Date: 20090304
  Receipt Date: 20080908
  Transmission Date: 20090719
  Serious: No
  Sender: FDA-Public Use
  Company Number: A0746315A

PATIENT
  Age: 44 Year
  Sex: Female

DRUGS (7)
  1. REQUIP [Suspect]
     Indication: RESTLESS LEGS SYNDROME
     Route: 048
     Dates: start: 20080902
  2. METFORMIN [Concomitant]
  3. CYMBALTA [Concomitant]
  4. VITAMIN B-12 [Concomitant]
     Dosage: 1000MG PER DAY
  5. PYRIDOXINE HCL [Concomitant]
     Dosage: 500MG PER DAY
  6. ASPIRIN [Concomitant]
  7. MULTI-VITAMIN [Concomitant]

REACTIONS (3)
  - ANOREXIA [None]
  - DRUG INEFFECTIVE [None]
  - INSOMNIA [None]
